FAERS Safety Report 4594772-3 (Version None)
Quarter: 2005Q1

REPORT INFORMATION
  Report Type: 
  Country: None (occurrence: None)
  Receive Date: 20050223
  Receipt Date: 20050218
  Transmission Date: 20050727
  Serious: Yes (Hospitalization, Other)
  Sender: FDA-Public Use
  Company Number: KII-2005-0015236

PATIENT
  Age: 46 Year
  Sex: Male

DRUGS (2)
  1. OXYCONTIN [Suspect]
     Dosage: ORAL
     Route: 048
  2. GABAPENTIN [Suspect]
     Dosage: ORAL
     Route: 048

REACTIONS (10)
  - BLOOD PRESSURE DIASTOLIC DECREASED [None]
  - BRADYPHRENIA [None]
  - CONFUSIONAL STATE [None]
  - DEPRESSED LEVEL OF CONSCIOUSNESS [None]
  - HEART RATE INCREASED [None]
  - MIOSIS [None]
  - MULTIPLE DRUG OVERDOSE [None]
  - OXYGEN SATURATION DECREASED [None]
  - PUPILLARY REFLEX IMPAIRED [None]
  - RESPIRATORY RATE DECREASED [None]
